FAERS Safety Report 23741746 (Version 1)
Quarter: 2024Q2

REPORT INFORMATION
  Report Type: Spontaneous
  Country: US (occurrence: US)
  Receive Date: 20240415
  Receipt Date: 20240415
  Transmission Date: 20240715
  Serious: Yes (Hospitalization, Other)
  Sender: FDA-Public Use
  Company Number: US-ABBVIE-5715739

PATIENT
  Sex: Female

DRUGS (1)
  1. NAMENDA [Suspect]
     Active Substance: MEMANTINE HYDROCHLORIDE
     Indication: Product used for unknown indication
     Dosage: 2MG/ML SOLUTION
     Route: 048

REACTIONS (3)
  - Cardiac arrest [Unknown]
  - Adverse reaction [Unknown]
  - Vital capacity decreased [Unknown]
